FAERS Safety Report 5692188-X (Version None)
Quarter: 2008Q2

REPORT INFORMATION
  Report Type: 
  Country: None (occurrence: None)
  Receive Date: 20080402
  Receipt Date: 20080327
  Transmission Date: 20081010
  Serious: Yes (Death)
  Sender: FDA-Public Use
  Company Number: B0512168A

PATIENT
  Age: 39 Year
  Sex: Male

DRUGS (1)
  1. IMIGRAN RECOVERY [Suspect]
     Indication: MIGRAINE

REACTIONS (2)
  - CARDIO-RESPIRATORY ARREST [None]
  - MYOCARDIAL INFARCTION [None]
